FAERS Safety Report 18125181 (Version 2)
Quarter: 2021Q2

REPORT INFORMATION
  Report Type: Spontaneous
  Country: CA (occurrence: CA)
  Receive Date: 20200807
  Receipt Date: 20210513
  Transmission Date: 20210717
  Serious: Yes (Other)
  Sender: FDA-Public Use
  Company Number: CA-SAMSUNG BIOEPIS-SB-2020-24091

PATIENT
  Age: 20 Year
  Sex: Male
  Weight: 87 kg

DRUGS (13)
  1. PARA?AMINOSALICYLIC ACID [Concomitant]
     Active Substance: AMINOSALICYLIC ACID
     Indication: PRODUCT USED FOR UNKNOWN INDICATION
     Route: 054
  2. PREDNISONE. [Concomitant]
     Active Substance: PREDNISONE
     Indication: PRODUCT USED FOR UNKNOWN INDICATION
     Dosage: UNKNOWN
     Route: 065
  3. MEZAVANT [Concomitant]
     Active Substance: MESALAMINE
     Route: 048
  4. PREDNISONE. [Concomitant]
     Active Substance: PREDNISONE
     Route: 048
  5. VANCOMYCIN [Concomitant]
     Active Substance: VANCOMYCIN
     Indication: PRODUCT USED FOR UNKNOWN INDICATION
     Dosage: UNKNOWN
     Route: 065
  6. BUDESONIDE. [Concomitant]
     Active Substance: BUDESONIDE
     Indication: PRODUCT USED FOR UNKNOWN INDICATION
     Route: 048
  7. VITAMIN D [Concomitant]
     Active Substance: VITAMIN D NOS
     Indication: PRODUCT USED FOR UNKNOWN INDICATION
     Dosage: UNKNOWN
     Route: 065
  8. INFLIXIMAB [Suspect]
     Active Substance: INFLIXIMAB
     Route: 042
  9. MEZAVANT [Concomitant]
     Active Substance: MESALAMINE
     Dosage: DELAYED AND EXTENDED RELEASE
     Route: 048
  10. PARA?AMINOSALICYLIC ACID [Concomitant]
     Active Substance: AMINOSALICYLIC ACID
     Route: 065
  11. INFLIXIMAB [Suspect]
     Active Substance: INFLIXIMAB
     Indication: COLITIS ULCERATIVE
     Route: 042
  12. MEZAVANT [Concomitant]
     Active Substance: MESALAMINE
     Indication: PRODUCT USED FOR UNKNOWN INDICATION
     Dosage: DELAYED AND EXTENDED RELEASE
     Route: 048
  13. TRAMACET [Concomitant]
     Active Substance: ACETAMINOPHEN\TRAMADOL
     Indication: ABDOMINAL PAIN
     Dosage: UNKNOWN
     Route: 065

REACTIONS (27)
  - Haemoglobin decreased [Recovered/Resolved]
  - Mean cell haemoglobin decreased [Recovered/Resolved]
  - Pain [Recovered/Resolved]
  - Platelet count decreased [Not Recovered/Not Resolved]
  - Weight decreased [Recovered/Resolved]
  - Off label use [Recovered/Resolved]
  - Leukocytosis [Recovered/Resolved]
  - C-reactive protein abnormal [Recovered/Resolved]
  - Serum ferritin decreased [Recovered/Resolved]
  - White blood cell count increased [Recovered/Resolved]
  - Inappropriate schedule of product administration [Not Recovered/Not Resolved]
  - C-reactive protein decreased [Not Recovered/Not Resolved]
  - Neutrophil count increased [Recovered/Resolved]
  - Therapeutic response shortened [Recovered/Resolved]
  - Intentional product use issue [Recovered/Resolved]
  - White blood cell count decreased [Not Recovered/Not Resolved]
  - Alanine aminotransferase increased [Recovered/Resolved]
  - Mean cell volume decreased [Recovered/Resolved]
  - Platelet count increased [Recovered/Resolved]
  - Prescribed overdose [Not Recovered/Not Resolved]
  - Anaemia [Recovered/Resolved]
  - Clostridium difficile infection [Recovered/Resolved]
  - Condition aggravated [Recovered/Resolved]
  - Drug level above therapeutic [Recovered/Resolved]
  - Constipation [Recovered/Resolved]
  - Haemoglobin increased [Not Recovered/Not Resolved]
  - Weight increased [Recovered/Resolved]
